FAERS Safety Report 7750116-7 (Version None)
Quarter: 2011Q3

REPORT INFORMATION
  Report Type: 
  Country: None (occurrence: None)
  Receive Date: 20110912
  Receipt Date: 20110908
  Transmission Date: 20111222
  Serious: Yes (Death)
  Sender: FDA-Public Use
  Company Number: 2011SP032951

PATIENT

DRUGS (1)
  1. NEXPLANON [Suspect]
     Indication: MATERNAL DRUGS AFFECTING FOETUS
     Dosage: TRPL
     Route: 064

REACTIONS (3)
  - DEATH NEONATAL [None]
  - PREMATURE BABY [None]
  - MATERNAL DRUGS AFFECTING FOETUS [None]
